FAERS Safety Report 9316644 (Version 2)
Quarter: 2013Q3

REPORT INFORMATION
  Report Type: Spontaneous
  Country: GB (occurrence: GB)
  Receive Date: 20130530
  Receipt Date: 20130702
  Transmission Date: 20140515
  Serious: Yes (Disabling)
  Sender: FDA-Public Use
  Company Number: PHFR2013GB003104

PATIENT
  Age: 45 Year
  Sex: Male
  Weight: 70 kg

DRUGS (5)
  1. VOLTAROL [Suspect]
     Indication: BACK PAIN
     Dosage: 75 MG, QD
     Route: 030
     Dates: start: 20130130, end: 20130130
  2. CLOZARIL [Suspect]
     Dosage: 75 MG, UNK
     Route: 030
     Dates: start: 20130130
  3. DIAZEPAM [Concomitant]
     Dosage: UNK UKN, UNK
  4. CODEINE PHOSPHATE [Concomitant]
     Dosage: UNK UKN, UNK
  5. NUROFEN [Concomitant]
     Dosage: UNK UKN, UNK

REACTIONS (4)
  - Nerve injury [Unknown]
  - Paraesthesia [Not Recovered/Not Resolved]
  - Hypoaesthesia [Not Recovered/Not Resolved]
  - Burning sensation [Not Recovered/Not Resolved]
